FAERS Safety Report 19451033 (Version 1)
Quarter: 2021Q2

REPORT INFORMATION
  Report Type: Spontaneous
  Country: US (occurrence: US)
  Receive Date: 20210622
  Receipt Date: 20210622
  Transmission Date: 20210717
  Serious: Yes (Other)
  Sender: FDA-Public Use
  Company Number: US-ABBVIE-21K-163-3958460-00

PATIENT
  Age: 25 Year
  Sex: Female

DRUGS (4)
  1. LUPRON [Suspect]
     Active Substance: LEUPROLIDE ACETATE
     Indication: ENDOMETRIOSIS
     Route: 065
  2. LUPRON [Suspect]
     Active Substance: LEUPROLIDE ACETATE
     Indication: UTERINE LEIOMYOMA
  3. ORILISSA [Suspect]
     Active Substance: ELAGOLIX SODIUM
     Indication: UTERINE LEIOMYOMA
     Route: 048
  4. ORILISSA [Suspect]
     Active Substance: ELAGOLIX SODIUM
     Indication: ENDOMETRIOSIS

REACTIONS (20)
  - Cervix disorder [Unknown]
  - Libido disorder [Unknown]
  - Dyspepsia [Unknown]
  - Hypertrichosis [Unknown]
  - Temporomandibular joint syndrome [Unknown]
  - Feeling abnormal [Unknown]
  - Vitamin D deficiency [Unknown]
  - Vomiting [Unknown]
  - Depression [Unknown]
  - Drug ineffective [Unknown]
  - Endometriosis [Unknown]
  - Acne [Unknown]
  - Swelling [Unknown]
  - Abdominal pain upper [Unknown]
  - Back pain [Unknown]
  - Pain [Unknown]
  - Dyspareunia [Unknown]
  - Muscle tightness [Unknown]
  - Retching [Unknown]
  - Anxiety [Unknown]
